FAERS Safety Report 21063312 (Version 2)
Quarter: 2022Q3

REPORT INFORMATION
  Report Type: Other
  Country: EG (occurrence: EG)
  Receive Date: 20220711
  Receipt Date: 20220819
  Transmission Date: 20221027
  Serious: Yes (Other)
  Sender: FDA-Public Use
  Company Number: EG-002147023-NVSC2022EG137092

PATIENT
  Age: 37 Year
  Sex: Female

DRUGS (1)
  1. XOLAIR [Suspect]
     Active Substance: OMALIZUMAB
     Indication: Urticaria
     Route: 065
     Dates: start: 2018

REACTIONS (21)
  - Urticaria [Recovered/Resolved]
  - Pain in extremity [Recovering/Resolving]
  - Food allergy [Recovering/Resolving]
  - Tachycardia [Recovered/Resolved]
  - Peripheral swelling [Recovering/Resolving]
  - C-reactive protein increased [Unknown]
  - Rash macular [Recovering/Resolving]
  - Drug ineffective [Recovered/Resolved]
  - Thyroid disorder [Recovered/Resolved]
  - Blood cholesterol increased [Unknown]
  - Suspected COVID-19 [Recovered/Resolved]
  - Bone pain [Not Recovered/Not Resolved]
  - Nasopharyngitis [Recovered/Resolved]
  - Chest discomfort [Recovered/Resolved]
  - Urticaria [Recovered/Resolved]
  - Arthralgia [Not Recovered/Not Resolved]
  - Blood immunoglobulin E increased [Unknown]
  - Cough [Recovered/Resolved]
  - Headache [Not Recovered/Not Resolved]
  - Off label use [Unknown]
  - Product dose omission issue [Unknown]

NARRATIVE: CASE EVENT DATE: 20180101
